FAERS Safety Report 25670088 (Version 2)
Quarter: 2025Q3

REPORT INFORMATION
  Report Type: Spontaneous
  Country: US (occurrence: US)
  Receive Date: 20250812
  Receipt Date: 20250910
  Transmission Date: 20251020
  Serious: No
  Sender: IPSEN BIOPHARMACEUTICALS, INC.
  Company Number: US-IPSEN Group, Research and Development-2025-19387

PATIENT
  Sex: Female
  Weight: 56.7 kg

DRUGS (4)
  1. IQIRVO [Suspect]
     Active Substance: ELAFIBRANOR
     Indication: Primary biliary cholangitis
     Dosage: 1 TABLET(80MG) BY MOUTH
     Route: 048
  2. NIFEDIPINE [Concomitant]
     Active Substance: NIFEDIPINE
  3. Fenofibratet [Concomitant]
  4. LEVOTHYROXINE SODIUM [Concomitant]
     Active Substance: LEVOTHYROXINE SODIUM

REACTIONS (2)
  - Muscle spasms [Unknown]
  - Peripheral swelling [Unknown]
